FAERS Safety Report 24557630 (Version 1)
Quarter: 2024Q4

REPORT INFORMATION
  Report Type: Spontaneous
  Country: IT (occurrence: IT)
  Receive Date: 20241028
  Receipt Date: 20241028
  Transmission Date: 20250114
  Serious: Yes (Life-Threatening, Hospitalization, Disabling)
  Sender: TEVA
  Company Number: None

PATIENT
  Age: 67 Year
  Sex: Male
  Weight: 79 kg

DRUGS (3)
  1. METHOTREXATE [Suspect]
     Active Substance: METHOTREXATE
     Indication: Allogenic stem cell transplantation
     Dosage: 30 MG IV ON 08/28/2024, 20 MG IV ON 08/30/2024, 20 MG IV ON 02/09/2024
     Route: 042
     Dates: start: 20240828, end: 20240902
  2. TREOSULFAN [Suspect]
     Active Substance: TREOSULFAN
     Indication: Allogenic stem cell transplantation
     Dosage: 10000 MG/M2/DAY
     Route: 042
     Dates: start: 20240823, end: 20240825
  3. FLUDARABINE [Suspect]
     Active Substance: FLUDARABINE PHOSPHATE
     Indication: Allogenic stem cell transplantation
     Dosage: 30 MG/M2/DAY
     Route: 042
     Dates: start: 20240821, end: 20240825

REACTIONS (1)
  - Hepatorenal failure [Recovering/Resolving]

NARRATIVE: CASE EVENT DATE: 20240911
